FAERS Safety Report 15996369 (Version 7)
Quarter: 2019Q3

REPORT INFORMATION
  Report Type: Spontaneous
  Country: US (occurrence: US)
  Receive Date: 20190222
  Receipt Date: 20190924
  Transmission Date: 20191004
  Serious: Yes (Hospitalization)
  Sender: FDA-Public Use
  Company Number: US-ACTELION-A-NJ2019-185834

PATIENT
  Age: 74 Year
  Sex: Female
  Weight: 62.59 kg

DRUGS (7)
  1. UPTRAVI [Suspect]
     Active Substance: SELEXIPAG
     Indication: PULMONARY ARTERIAL HYPERTENSION
     Dosage: 1600 MCG, BID
     Route: 048
  2. ELIQUIS [Concomitant]
     Active Substance: APIXABAN
  3. DILTIAZEM. [Concomitant]
     Active Substance: DILTIAZEM
  4. UPTRAVI [Suspect]
     Active Substance: SELEXIPAG
     Dosage: 1200 MCG, BID
     Route: 048
  5. UPTRAVI [Suspect]
     Active Substance: SELEXIPAG
     Dosage: 400 MCG, BID
     Route: 048
  6. UPTRAVI [Suspect]
     Active Substance: SELEXIPAG
     Dosage: 1000 MCG, BID
     Route: 048
  7. ADCIRCA [Concomitant]
     Active Substance: TADALAFIL

REACTIONS (15)
  - Fatigue [Unknown]
  - Syncope [Unknown]
  - Urinary tract infection [Unknown]
  - Pain [Unknown]
  - Myalgia [Unknown]
  - Presyncope [Unknown]
  - Headache [Unknown]
  - Loss of consciousness [Unknown]
  - Blood potassium decreased [Unknown]
  - Atrial flutter [Recovered/Resolved]
  - Fluid retention [Unknown]
  - Product administration error [Unknown]
  - Heart rate increased [Unknown]
  - Pain in extremity [Unknown]
  - Hypertension [Unknown]

NARRATIVE: CASE EVENT DATE: 20190725
